FAERS Safety Report 6977186-8 (Version None)
Quarter: 2010Q3

REPORT INFORMATION
  Report Type: 
  Country: None (occurrence: None)
  Receive Date: 20100910
  Receipt Date: 20100831
  Transmission Date: 20110219
  Serious: Yes (Other)
  Sender: FDA-Public Use
  Company Number: US-PFIZER INC-2010110449

PATIENT
  Sex: Female
  Weight: 82.54 kg

DRUGS (2)
  1. LYRICA [Suspect]
     Indication: NEUROPATHY PERIPHERAL
     Dosage: 300 MG, UNK
     Dates: start: 20080301
  2. CYMBALTA [Concomitant]
     Dosage: UNK

REACTIONS (4)
  - BLOOD FOLATE DECREASED [None]
  - DRUG INEFFECTIVE [None]
  - PAIN [None]
  - WEIGHT INCREASED [None]
